FAERS Safety Report 12742861 (Version 4)
Quarter: 2016Q4

REPORT INFORMATION
  Report Type: Report from Study
  Country: None (occurrence: BE)
  Receive Date: 20160914
  Receipt Date: 20161214
  Transmission Date: 20170207
  Serious: Yes (Hospitalization, Other)
  Sender: FDA-Public Use
  Company Number: BE-ABBVIE-16K-013-1722244-00

PATIENT
  Age: 66 Year
  Sex: Male

DRUGS (6)
  1. DUODOPA [Suspect]
     Active Substance: CARBIDOPA\LEVODOPA
     Dosage: AM= 6.5 ML; CD= 4 ML/H DURING 16 HRS; ED= 2 ML
     Route: 050
     Dates: start: 20161010, end: 20161020
  2. DUODOPA [Suspect]
     Active Substance: CARBIDOPA\LEVODOPA
     Indication: PARKINSON^S DISEASE
     Dosage: AM=4.5ML; CD=3.3ML/HR DURING 16HRS; ED=2ML
     Route: 050
     Dates: start: 20131216, end: 20140108
  3. DUODOPA [Suspect]
     Active Substance: CARBIDOPA\LEVODOPA
     Dosage: AM=6.5ML; CD=3.8ML/HR DURING 16HRS; ED=2.8ML
     Route: 050
     Dates: start: 201609, end: 20161010
  4. DUODOPA [Suspect]
     Active Substance: CARBIDOPA\LEVODOPA
     Dosage: AM= 7.5 ML; CD= 4 ML/H DURING 16HRS; ED= 2 ML
     Route: 050
     Dates: start: 20161020
  5. DUODOPA [Suspect]
     Active Substance: CARBIDOPA\LEVODOPA
     Dosage: DOSES CONTINUOUSLY MONITORED AND ADAPTED
     Route: 050
     Dates: start: 20140108, end: 20160818
  6. DUODOPA [Suspect]
     Active Substance: CARBIDOPA\LEVODOPA
     Dosage: AM=6.5ML; CD=3.8ML/HR DURING 16HRS; ED=2.8ML
     Route: 050
     Dates: start: 20160818, end: 201609

REACTIONS (10)
  - Femur fracture [Unknown]
  - Inguinal hernia [Unknown]
  - Incorrect route of drug administration [Recovered/Resolved]
  - Fall [Recovered/Resolved]
  - Device occlusion [Recovered/Resolved]
  - Fall [Recovered/Resolved]
  - Freezing phenomenon [Unknown]
  - Femur fracture [Unknown]
  - Hip arthroplasty [Unknown]
  - Intestinal obstruction [Unknown]

NARRATIVE: CASE EVENT DATE: 20160901
